FAERS Safety Report 9932591 (Version 1)
Quarter: 2014Q1

REPORT INFORMATION
  Report Type: Spontaneous
  Country: US (occurrence: US)
  Receive Date: 20140228
  Receipt Date: 20140228
  Transmission Date: 20141002
  Serious: No
  Sender: FDA-Public Use
  Company Number: US-ABBVIE-13P-163-1099329-00

PATIENT
  Age: 53 Year
  Sex: Male
  Weight: 90.8 kg

DRUGS (2)
  1. ANDROGEL [Suspect]
     Indication: BLOOD TESTOSTERONE DECREASED
     Dates: start: 201305, end: 20130528
  2. METFORMIN [Concomitant]
     Indication: PRODUCT USED FOR UNKNOWN INDICATION

REACTIONS (7)
  - Dysuria [Recovered/Resolved]
  - Hyperhidrosis [Recovered/Resolved]
  - Ill-defined disorder [Recovered/Resolved]
  - Chest pain [Recovered/Resolved]
  - Fatigue [Recovering/Resolving]
  - Nausea [Recovered/Resolved]
  - Insomnia [Recovered/Resolved]
